FAERS Safety Report 9605165 (Version 1)
Quarter: 2013Q4

REPORT INFORMATION
  Report Type: Spontaneous
  Country: US (occurrence: US)
  Receive Date: 20131008
  Receipt Date: 20131008
  Transmission Date: 20140711
  Serious: No
  Sender: FDA-Public Use
  Company Number: US-BAXTER-2013BAX035845

PATIENT
  Sex: Female

DRUGS (1)
  1. DIANEAL PD2 [Suspect]
     Indication: PERITONEAL DIALYSIS
     Dosage: 5 BAGS
     Route: 033
     Dates: start: 20130907, end: 20130910

REACTIONS (2)
  - Procedural pain [Unknown]
  - Discomfort [Unknown]
